FAERS Safety Report 7096191-7 (Version None)
Quarter: 2010Q4

REPORT INFORMATION
  Report Type: 
  Country: None (occurrence: None)
  Receive Date: 20101111
  Receipt Date: 20101102
  Transmission Date: 20110411
  Serious: Yes (Death)
  Sender: FDA-Public Use
  Company Number: IL-ROCHE-738753

PATIENT
  Age: 62 Year
  Sex: Male

DRUGS (6)
  1. TAMIFLU [Suspect]
     Indication: H1N1 INFLUENZA
     Route: 065
  2. CELLCEPT [Suspect]
     Dosage: DRUG DISCONTINUED.
     Route: 065
  3. CICLOSPORIN [Suspect]
     Dosage: DRUG DISCONTINUED. DRUG NAME: CYA.
     Route: 065
  4. METHYLPREDNISOLONE [Suspect]
     Route: 065
  5. SOMATOSTATIN [Suspect]
     Route: 065
  6. URSODIOL [Suspect]
     Route: 065

REACTIONS (5)
  - ACUTE RESPIRATORY DISTRESS SYNDROME [None]
  - H1N1 INFLUENZA [None]
  - KLEBSIELLA SEPSIS [None]
  - MULTI-ORGAN FAILURE [None]
  - RESPIRATORY FAILURE [None]
